FAERS Safety Report 5195590-8 (Version None)
Quarter: 2006Q4

REPORT INFORMATION
  Report Type: 
  Country: None (occurrence: None)
  Receive Date: 20061226
  Receipt Date: 20061226
  Transmission Date: 20070319
  Serious: No
  Sender: FDA-Public Use
  Company Number: None

PATIENT
  Age: 61 Year
  Sex: Male
  Weight: 125.1928 kg

DRUGS (2)
  1. DULOXETINE [Suspect]
     Indication: AFFECTIVE DISORDER
     Dosage: 30 MG DAILY PO
     Route: 048
     Dates: start: 20061010, end: 20061103
  2. DULOXETINE [Suspect]
     Indication: NEUROPATHY
     Dosage: 30 MG DAILY PO
     Route: 048
     Dates: start: 20061010, end: 20061103

REACTIONS (1)
  - RASH PRURITIC [None]
